FAERS Safety Report 5003422-3 (Version None)
Quarter: 2006Q2

REPORT INFORMATION
  Report Type: 
  Country: None (occurrence: None)
  Receive Date: 20060511
  Receipt Date: 20060428
  Transmission Date: 20061013
  Serious: Yes (Other)
  Sender: FDA-Public Use
  Company Number: T200600165

PATIENT
  Age: 69 Year
  Sex: Female

DRUGS (3)
  1. OPTIRAY 240 [Suspect]
     Indication: COMPUTERISED TOMOGRAM HEAD
     Dosage: 95 ML, SINGLE, INTRAVENOUS
     Route: 042
     Dates: start: 20060331, end: 20060331
  2. MECOBALAMIN (MECOBALAMIN) [Concomitant]
  3. DIFENIDOL HYDROCHLORIDE (DIFENIDOL HYROCHLORIDE) [Concomitant]

REACTIONS (11)
  - BLOOD PRESSURE DECREASED [None]
  - CHILLS [None]
  - DEPRESSED LEVEL OF CONSCIOUSNESS [None]
  - HEADACHE [None]
  - HEART RATE INCREASED [None]
  - MALAISE [None]
  - NAUSEA [None]
  - NO REACTION ON PREVIOUS EXPOSURE TO DRUG [None]
  - OXYGEN SATURATION DECREASED [None]
  - POST PROCEDURAL COMPLICATION [None]
  - SHOCK [None]
